FAERS Safety Report 8975866 (Version 1)
Quarter: 2012Q4

REPORT INFORMATION
  Report Type: 
  Country: CA (occurrence: CA)
  Receive Date: 20121219
  Receipt Date: 20121219
  Transmission Date: 20130627
  Serious: Yes (Hospitalization, Other)
  Sender: FDA-Public Use
  Company Number: CA-GLAXOSMITHKLINE-A1002837A

PATIENT
  Age: 44 Year
  Sex: Male
  Weight: 95 kg

DRUGS (6)
  1. REVOLADE [Suspect]
     Indication: IDIOPATHIC THROMBOCYTOPENIC PURPURA
     Dosage: 50MG Per day
     Route: 065
     Dates: start: 20120815, end: 20121017
  2. CYCLOBENZAPRINE [Concomitant]
     Dosage: 10MG As required
  3. HYDROMORPHONE [Concomitant]
  4. MELATONIN [Concomitant]
  5. VITAMIN C [Concomitant]
  6. PREDNISONE [Concomitant]

REACTIONS (5)
  - Deep vein thrombosis [Recovering/Resolving]
  - Inflammation [Recovering/Resolving]
  - Oedema [Unknown]
  - Varicose vein [Unknown]
  - Adverse event [Unknown]
